FAERS Safety Report 22228604 (Version 2)
Quarter: 2023Q2

REPORT INFORMATION
  Report Type: Report from Study
  Country: US (occurrence: US)
  Receive Date: 20230419
  Receipt Date: 20230515
  Transmission Date: 20230722
  Serious: Yes (Hospitalization, Other)
  Sender: FDA-Public Use
  Company Number: US-JNJFOC-20230434756

PATIENT
  Age: 46 Year
  Sex: Female

DRUGS (1)
  1. MACITENTAN [Suspect]
     Active Substance: MACITENTAN
     Indication: Pulmonary arterial hypertension
     Route: 048
     Dates: start: 202303

REACTIONS (2)
  - Chest pain [Not Recovered/Not Resolved]
  - Fluid retention [Not Recovered/Not Resolved]
